FAERS Safety Report 22218968 (Version 1)
Quarter: 2023Q2

REPORT INFORMATION
  Report Type: Spontaneous
  Country: US (occurrence: None)
  Receive Date: 20230414
  Receipt Date: 20230414
  Transmission Date: 20230722
  Serious: No
  Sender: FDA-Public Use
  Company Number: None

PATIENT
  Age: 28 Year
  Sex: Female

DRUGS (1)
  1. GRANIX [Suspect]
     Active Substance: TBO-FILGRASTIM
     Route: 058
     Dates: start: 202112

REACTIONS (2)
  - Inappropriate schedule of product administration [None]
  - Product availability issue [None]

NARRATIVE: CASE EVENT DATE: 20230414
